FAERS Safety Report 5322680-9 (Version None)
Quarter: 2007Q2

REPORT INFORMATION
  Report Type: 
  Country: None (occurrence: None)
  Receive Date: 20070511
  Receipt Date: 20060808
  Transmission Date: 20071010
  Serious: No
  Sender: FDA-Public Use
  Company Number: US-BRISTOL-MYERS SQUIBB COMPANY-13470109

PATIENT
  Sex: Female

DRUGS (1)
  1. LAC-HYDRIN [Suspect]
     Indication: DRY SKIN
     Route: 061
     Dates: start: 20060501, end: 20060701

REACTIONS (1)
  - DRUG INEFFECTIVE [None]
